FAERS Safety Report 8885045 (Version 2)
Quarter: 2012Q4

REPORT INFORMATION
  Report Type: 
  Country: US (occurrence: US)
  Receive Date: 20121105
  Receipt Date: 20121219
  Transmission Date: 20130627
  Serious: Yes (Other)
  Sender: FDA-Public Use
  Company Number: US-BIOGENIDEC-2012BI048532

PATIENT
  Age: 50 None
  Sex: Female
  Weight: 62 kg

DRUGS (10)
  1. AVONEX [Suspect]
     Indication: MULTIPLE SCLEROSIS
     Route: 030
     Dates: start: 20110507, end: 20121128
  2. AVONEX [Suspect]
     Indication: MULTIPLE SCLEROSIS
     Route: 030
     Dates: start: 20121128
  3. OXCARBAZEPINE [Concomitant]
     Route: 048
  4. NAPROXEN [Concomitant]
     Indication: PREMEDICATION
     Route: 048
  5. VITAMIN D [Concomitant]
     Route: 048
  6. HYDROXYCHLOROQUINE SULFATE [Concomitant]
     Route: 048
  7. LOVASTATIN [Concomitant]
     Route: 048
  8. BACLOFEN [Concomitant]
     Route: 048
  9. GABAPENTIN [Concomitant]
     Route: 048
  10. OXYCODONE-ACETAMINOPHEN [Concomitant]
     Route: 048

REACTIONS (7)
  - Trigeminal neuralgia [Unknown]
  - Systemic lupus erythematosus [Unknown]
  - Injection site swelling [Not Recovered/Not Resolved]
  - Platelet count decreased [Unknown]
  - Headache [Unknown]
  - Injection site erythema [Not Recovered/Not Resolved]
  - Injection site pain [Not Recovered/Not Resolved]
